FAERS Safety Report 6850025-1 (Version None)
Quarter: 2010Q3

REPORT INFORMATION
  Report Type: 
  Country: None (occurrence: None)
  Receive Date: 20100716
  Receipt Date: 20071010
  Transmission Date: 20110219
  Serious: No
  Sender: FDA-Public Use
  Company Number: US-PFIZER INC-2007085726

PATIENT
  Sex: Male
  Weight: 49.4 kg

DRUGS (9)
  1. CHANTIX [Suspect]
     Indication: SMOKING CESSATION THERAPY
     Route: 048
     Dates: start: 20071001
  2. SYNTHROID [Concomitant]
  3. ATENOLOL [Concomitant]
  4. OMACOR [Concomitant]
  5. ZETIA [Concomitant]
  6. PROZAC [Concomitant]
  7. VITAMINS [Concomitant]
  8. FOLIC ACID [Concomitant]
  9. HYOSCYAMINE [Concomitant]

REACTIONS (2)
  - ABNORMAL DREAMS [None]
  - VOMITING [None]
